FAERS Safety Report 25388742 (Version 1)
Quarter: 2025Q2

REPORT INFORMATION
  Report Type: Spontaneous
  Country: JP (occurrence: JP)
  Receive Date: 20250603
  Receipt Date: 20250603
  Transmission Date: 20250717
  Serious: Yes (Other)
  Sender: ALEXION PHARMACEUTICALS
  Company Number: JP-ASTRAZENECA-250052169_013020_P_1

PATIENT
  Age: 8 Decade

DRUGS (1)
  1. OSIMERTINIB [Suspect]
     Active Substance: OSIMERTINIB
     Indication: Non-small cell lung cancer
     Dosage: 80 MILLIGRAM, QD

REACTIONS (7)
  - Dry skin [Unknown]
  - Pruritus [Unknown]
  - Dermatitis acneiform [Unknown]
  - Paronychia [Unknown]
  - Stomatitis [Unknown]
  - Alopecia [Unknown]
  - Blood creatine phosphokinase increased [Unknown]
